FAERS Safety Report 7588704-3 (Version None)
Quarter: 2011Q3

REPORT INFORMATION
  Report Type: 
  Country: None (occurrence: None)
  Receive Date: 20110705
  Receipt Date: 20110610
  Transmission Date: 20111222
  Serious: Yes (Hospitalization, Other)
  Sender: FDA-Public Use
  Company Number: US-BAYER-2011-024496

PATIENT
  Age: 28 Year
  Sex: Female
  Weight: 130 kg

DRUGS (1)
  1. YAZ [Suspect]
     Dosage: 1 DF, QD
     Dates: start: 20081107, end: 20090101

REACTIONS (4)
  - CHOLELITHIASIS [None]
  - CHOLECYSTECTOMY [None]
  - PAIN [None]
  - INJURY [None]
